FAERS Safety Report 13740129 (Version 1)
Quarter: 2017Q3

REPORT INFORMATION
  Report Type: Spontaneous
  Country: US (occurrence: US)
  Receive Date: 20170710
  Receipt Date: 20170710
  Transmission Date: 20171127
  Serious: Yes (Life-Threatening, Disabling)
  Sender: FDA-Public Use
  Company Number: None

PATIENT
  Age: 62 Year
  Sex: Female
  Weight: 56.25 kg

DRUGS (1)
  1. KLONOPIN [Suspect]
     Active Substance: CLONAZEPAM
     Indication: INSOMNIA
     Dosage: ?          OTHER STRENGTH:MG;?
     Route: 048

REACTIONS (19)
  - Suicidal ideation [None]
  - Agoraphobia [None]
  - Headache [None]
  - Drug withdrawal syndrome [None]
  - Fatigue [None]
  - Visual impairment [None]
  - Pain [None]
  - Cognitive disorder [None]
  - Insomnia [None]
  - Vertigo [None]
  - Asthenia [None]
  - Palpitations [None]
  - Sensory disturbance [None]
  - Impaired work ability [None]
  - Neuralgia [None]
  - Anxiety [None]
  - Depression [None]
  - Nightmare [None]
  - Emotional distress [None]

NARRATIVE: CASE EVENT DATE: 20110711
